FAERS Safety Report 9401548 (Version 1)
Quarter: 2013Q3

REPORT INFORMATION
  Report Type: Spontaneous
  Country: GR (occurrence: GR)
  Receive Date: 20130716
  Receipt Date: 20130716
  Transmission Date: 20140515
  Serious: Yes (Other)
  Sender: FDA-Public Use
  Company Number: GR-ROCHE-1248841

PATIENT
  Age: 79 Year
  Sex: Female

DRUGS (6)
  1. BONVIVA [Suspect]
     Indication: OSTEOPOROSIS
     Route: 065
     Dates: start: 20130706
  2. VASEXTEN [Concomitant]
  3. ACCURETIC [Concomitant]
  4. GLUCOPHAGE [Concomitant]
  5. SOLOSA [Concomitant]
  6. LASIX [Concomitant]

REACTIONS (2)
  - Acne [Not Recovered/Not Resolved]
  - Pruritus [Not Recovered/Not Resolved]
